FAERS Safety Report 17425406 (Version 1)
Quarter: 2020Q1

REPORT INFORMATION
  Report Type: Spontaneous
  Country: FR (occurrence: FR)
  Receive Date: 20200217
  Receipt Date: 20200217
  Transmission Date: 20200409
  Serious: Yes (Life-Threatening)
  Sender: FDA-Public Use
  Company Number: FR-ASTRAZENECA-2020SE22421

PATIENT
  Age: 65 Year
  Sex: Male
  Weight: 75 kg

DRUGS (10)
  1. LAMICTAL [Suspect]
     Active Substance: LAMOTRIGINE
     Indication: BIPOLAR DISORDER
     Dosage: 60.0DF ONCE/SINGLE ADMINISTRATION
     Route: 065
     Dates: start: 20200106, end: 20200106
  2. TEMESTA [Concomitant]
  3. SULFARLEM [Concomitant]
     Active Substance: ANETHOLTRITHION
  4. QUETIAPINE. [Suspect]
     Active Substance: QUETIAPINE
     Indication: BIPOLAR DISORDER
     Dosage: 10.0DF ONCE/SINGLE ADMINISTRATION
     Route: 048
     Dates: start: 20200106, end: 20200106
  5. METFORMIN [Suspect]
     Active Substance: METFORMIN HYDROCHLORIDE
     Indication: TYPE 2 DIABETES MELLITUS
     Dosage: 15.0DF ONCE/SINGLE ADMINISTRATION
     Route: 065
     Dates: start: 20200106, end: 20200106
  6. THERALENE [Concomitant]
     Active Substance: TRIMEPRAZINE
     Indication: SLEEP DISORDER
  7. XARELTO [Concomitant]
     Active Substance: RIVAROXABAN
     Indication: SLEEP DISORDER
  8. LERCANIDIPINE [Suspect]
     Active Substance: LERCANIDIPINE
     Indication: HYPERTENSION
     Dosage: 30.0DF ONCE/SINGLE ADMINISTRATION
     Route: 065
     Dates: start: 20200106, end: 20200106
  9. MEDIATENSYL [Suspect]
     Active Substance: URAPIDIL
     Indication: HYPERTENSION
     Dosage: 30.0DF ONCE/SINGLE ADMINISTRATION
     Route: 065
     Dates: start: 20200106, end: 20200106
  10. CLOMIPRAMINE [Suspect]
     Active Substance: CLOMIPRAMINE
     Indication: DEPRESSION
     Dosage: 90.0DF ONCE/SINGLE ADMINISTRATION
     Route: 065
     Dates: start: 20200106, end: 20200106

REACTIONS (3)
  - Metabolic acidosis [Recovered/Resolved]
  - Suicide attempt [Recovered/Resolved]
  - Coma [Recovered/Resolved]
